FAERS Safety Report 4726401-X (Version None)
Quarter: 2005Q3

REPORT INFORMATION
  Report Type: 
  Country: None (occurrence: None)
  Receive Date: 20050726
  Receipt Date: 20050715
  Transmission Date: 20060218
  Serious: Yes (Other)
  Sender: FDA-Public Use
  Company Number: ES-2005-012772

PATIENT
  Sex: Female

DRUGS (1)
  1. MIRENA [Suspect]
     Dosage: 20 UG/DAY, CONT, INTRA-UTERINE
     Route: 015
     Dates: start: 20050101

REACTIONS (3)
  - ANTINUCLEAR ANTIBODY POSITIVE [None]
  - PIGMENTED NAEVUS [None]
  - SJOGREN'S SYNDROME [None]
